FAERS Safety Report 16811128 (Version 7)
Quarter: 2024Q1

REPORT INFORMATION
  Report Type: Spontaneous
  Country: CA (occurrence: CA)
  Receive Date: 20190916
  Receipt Date: 20240208
  Transmission Date: 20240409
  Serious: Yes (Hospitalization, Other)
  Sender: FDA-Public Use
  Company Number: CA-PFIZER INC-2019393340

PATIENT
  Age: 12 Year
  Sex: Female

DRUGS (1)
  1. RAPAMUNE [Suspect]
     Active Substance: SIROLIMUS
     Dosage: 2 MG, 2X/DAY
     Route: 048
     Dates: start: 2012

REACTIONS (11)
  - Respiratory failure [Unknown]
  - Pericardial effusion [Unknown]
  - Deafness neurosensory [Unknown]
  - Deafness [Unknown]
  - Drug level below therapeutic [Unknown]
  - Inappropriate schedule of product administration [Unknown]
  - Circumstance or information capable of leading to medication error [Unknown]
  - Lymphatic disorder [Unknown]
  - Pleural effusion [Unknown]
  - Mediastinal mass [Unknown]
  - Lymphangioma [Unknown]

NARRATIVE: CASE EVENT DATE: 20120101
